FAERS Safety Report 4389051-3 (Version None)
Quarter: 2004Q2

REPORT INFORMATION
  Report Type: 
  Country: None (occurrence: None)
  Receive Date: 20040628
  Receipt Date: 20040618
  Transmission Date: 20050107
  Serious: Yes (Life-Threatening)
  Sender: FDA-Public Use
  Company Number: 207285

PATIENT
  Age: 77 Year
  Sex: Female

DRUGS (3)
  1. ACTIVASE [Suspect]
     Indication: CEREBROVASCULAR ACCIDENT
     Dosage: 70 MG
     Dates: start: 20040419, end: 20040419
  2. EBRNTIL (URAPIDIL) [Concomitant]
  3. ACTRAPID (INSULIN) [Concomitant]

REACTIONS (1)
  - ANAPHYLACTIC REACTION [None]
